FAERS Safety Report 5614936-7 (Version None)
Quarter: 2008Q1

REPORT INFORMATION
  Report Type: 
  Country: None (occurrence: None)
  Receive Date: 20080204
  Receipt Date: 20080204
  Transmission Date: 20080703
  Serious: Yes (Hospitalization)
  Sender: FDA-Public Use
  Company Number: None

PATIENT
  Age: 68 Year
  Sex: Male
  Weight: 110.2241 kg

DRUGS (2)
  1. OXALIPLATIN [Suspect]
     Indication: SQUAMOUS CELL CARCINOMA
     Dosage: 130MG/M2=260MG EVERY 3 WKS IV
     Route: 042
     Dates: start: 20071218
  2. DOCETAXEL [Concomitant]

REACTIONS (5)
  - AUTONOMIC NEUROPATHY [None]
  - CELLULITIS [None]
  - CULTURE URINE POSITIVE [None]
  - DIZZINESS POSTURAL [None]
  - ORTHOSTATIC HYPOTENSION [None]
